FAERS Safety Report 5546841-9 (Version None)
Quarter: 2007Q4

REPORT INFORMATION
  Report Type: 
  Country: None (occurrence: None)
  Receive Date: 20071206
  Receipt Date: 20071031
  Transmission Date: 20080405
  Serious: Yes (Hospitalization)
  Sender: FDA-Public Use
  Company Number: 2007EU002476

PATIENT
  Age: 68 Year
  Sex: Female

DRUGS (13)
  1. TACROLIMUS [Suspect]
     Indication: RENAL TRANSPLANT
     Dosage: 0.5 MG, UID/QD, ORAL
     Route: 048
     Dates: start: 20031004
  2. MYCOPHENOLATE MOFETIL [Suspect]
     Indication: RENAL TRANSPLANT
     Dosage: 1 G, UID/QD, ORAL
     Route: 048
     Dates: start: 20031004
  3. METHYLPREDNISOLONE [Suspect]
     Indication: RENAL TRANSPLANT
     Dosage: 4 MG, UID/QD, OTHER
     Dates: start: 20031004
  4. ALLOPURINOL [Concomitant]
  5. ATORVASTATIN CALCIUM [Concomitant]
  6. METOPROLOL TARTRATE [Concomitant]
  7. FOSAMAX [Concomitant]
  8. DECOSTRIOL (CALCITRIOL) [Concomitant]
  9. ALDARA [Concomitant]
  10. REKAWAN (POTASSIUM CHLORIDE) [Concomitant]
  11. LORZAAR (LOSARTAN POTASSIUM) [Concomitant]
  12. PANTOZOL (PANTOPRAZOLE SODIUM) [Concomitant]
  13. RENAGEL [Concomitant]

REACTIONS (1)
  - RETINAL DETACHMENT [None]
